FAERS Safety Report 5197555-9 (Version None)
Quarter: 2006Q4

REPORT INFORMATION
  Report Type: 
  Country: None (occurrence: None)
  Receive Date: 20060926
  Receipt Date: 20060816
  Transmission Date: 20070319
  Serious: No
  Sender: FDA-Public Use
  Company Number: SP00949

PATIENT
  Age: 31 Year
  Sex: Female
  Weight: 68.0396 kg

DRUGS (2)
  1. XIFAXAN [Suspect]
     Indication: ESCHERICHIA INFECTION
     Dosage: ORAL
     Route: 048
     Dates: start: 20060801, end: 20060801
  2. XIFAXAN [Suspect]
     Indication: FOOD POISONING
     Dosage: ORAL
     Route: 048
     Dates: start: 20060801, end: 20060801

REACTIONS (10)
  - ABDOMINAL DISTENSION [None]
  - ARTHRALGIA [None]
  - ASTHENIA [None]
  - HEADACHE [None]
  - HYPOAESTHESIA [None]
  - MICTURITION URGENCY [None]
  - MUSCULAR WEAKNESS [None]
  - MYALGIA [None]
  - RASH [None]
  - URTICARIA [None]
